FAERS Safety Report 8963950 (Version 2)
Quarter: 2012Q4

REPORT INFORMATION
  Report Type: 
  Country: GB (occurrence: GB)
  Receive Date: 20121214
  Receipt Date: 20121217
  Transmission Date: 20130627
  Serious: No
  Sender: FDA-Public Use
  Company Number: GB-JNJCH-2008009070

PATIENT
  Age: 77 Year
  Sex: Female

DRUGS (8)
  1. IBUPROFEN [Suspect]
     Indication: ARTHRALGIA
     Dosage: 600 MG, 2 IN 1 DAY
     Route: 048
     Dates: start: 20040929, end: 20041017
  2. CELECOXIB [Suspect]
     Indication: ARTHRALGIA
     Dosage: 100 mg, 1x/day
     Route: 048
     Dates: start: 20040910, end: 20040922
  3. DICLOFENAC [Suspect]
     Indication: ARTHRALGIA
     Dosage: 50 mg, 3x/day
     Route: 048
     Dates: start: 20040922, end: 20040929
  4. AMOXYCILLIN [Concomitant]
     Dosage: 250 mg, 3x/day
     Route: 048
     Dates: start: 20040910, end: 20040919
  5. PARACETAMOL [Concomitant]
     Dosage: 1 g, 3x/day
     Route: 048
     Dates: start: 20040920, end: 20040922
  6. TRIMETHOPRIM [Concomitant]
     Dosage: 200 mg, 2x/day
     Route: 048
     Dates: start: 20040920, end: 20040922
  7. CO-CODAMOL [Concomitant]
     Dosage: 30/500, 2 TDS
     Route: 048
     Dates: start: 20040922, end: 20040929
  8. CO-DYDRAMOL [Concomitant]
     Dosage: 10/500, 2 TABS, BD
     Route: 048
     Dates: start: 20040929, end: 20041017

REACTIONS (2)
  - Thrombocytopenia [Recovering/Resolving]
  - Contusion [Recovering/Resolving]
